FAERS Safety Report 17599075 (Version 1)
Quarter: 2020Q1

REPORT INFORMATION
  Report Type: Spontaneous
  Country: JP (occurrence: JP)
  Receive Date: 20200330
  Receipt Date: 20200330
  Transmission Date: 20200409
  Serious: Yes (Hospitalization)
  Sender: FDA-Public Use
  Company Number: JP-TEVA-2020-JP-1213786

PATIENT
  Age: 76 Year
  Sex: Female

DRUGS (3)
  1. ACICLOVIR [Suspect]
     Active Substance: ACYCLOVIR
     Indication: HERPES ZOSTER
     Route: 041
  2. PREDNISOLONE. [Suspect]
     Active Substance: PREDNISOLONE
     Indication: INTERSTITIAL LUNG DISEASE
     Dosage: 10 MILLIGRAM DAILY;
     Route: 065
  3. AMENAMEVIR [Concomitant]
     Active Substance: AMENAMEVIR
     Indication: HERPES ZOSTER
     Route: 065

REACTIONS (4)
  - Herpes zoster [Recovering/Resolving]
  - Acute polyneuropathy [Recovering/Resolving]
  - Guillain-Barre syndrome [Recovering/Resolving]
  - Toxic encephalopathy [Recovering/Resolving]

NARRATIVE: CASE EVENT DATE: 2018
